FAERS Safety Report 6549628-3 (Version None)
Quarter: 2010Q1

REPORT INFORMATION
  Report Type: 
  Country: None (occurrence: None)
  Receive Date: 20100119
  Receipt Date: 20100106
  Transmission Date: 20100710
  Serious: Yes (Disabling)
  Sender: FDA-Public Use
  Company Number: OSCN-NO-0808S-0488

PATIENT
  Age: 54 Year
  Sex: Male
  Weight: 75 kg

DRUGS (9)
  1. OMNISCAN [Suspect]
     Indication: RENAL TRANSPLANT
     Dosage: NR, SINGLE DOSE, I.V.
     Route: 042
     Dates: start: 20030610, end: 20030610
  2. ALFACALCIDOL(ETALPHA) [Concomitant]
  3. COZAAR [Concomitant]
  4. BENDROFLUMENTHIAZIDE AND POTASSIUM (CENTYL MED KALIUMKLORID) [Concomitant]
  5. NORVASC [Concomitant]
  6. TERBUTALINE (BRICANYL) [Concomitant]
  7. PANTOPRAZOLE SODIUM [Concomitant]
  8. PULMICORT [Concomitant]
  9. ATROVENT [Concomitant]

REACTIONS (2)
  - ARTHRALGIA [None]
  - NEPHROGENIC SYSTEMIC FIBROSIS [None]
